FAERS Safety Report 4565014-X (Version None)
Quarter: 2005Q1

REPORT INFORMATION
  Report Type: 
  Country: None (occurrence: None)
  Receive Date: 20050126
  Receipt Date: 20050114
  Transmission Date: 20050727
  Serious: Yes (Hospitalization)
  Sender: FDA-Public Use
  Company Number: 2005015312

PATIENT

DRUGS (1)
  1. GENOTROPIN [Suspect]
     Indication: HYPOPITUITARISM

REACTIONS (1)
  - OSTEOARTHRITIS [None]
